FAERS Safety Report 11824537 (Version 2)
Quarter: 2016Q1

REPORT INFORMATION
  Report Type: Spontaneous
  Country: US (occurrence: US)
  Receive Date: 20151210
  Receipt Date: 20160128
  Transmission Date: 20160525
  Serious: Yes (Death)
  Sender: FDA-Public Use
  Company Number: US-ACTELION-A-US2015-128242

PATIENT
  Age: 75 Year
  Sex: Female

DRUGS (12)
  1. GLIPIZIDE. [Concomitant]
     Active Substance: GLIPIZIDE
  2. LEVOTHYROXINE. [Concomitant]
     Active Substance: LEVOTHYROXINE
  3. COUMADIN [Concomitant]
     Active Substance: WARFARIN SODIUM
  4. COLCHICINE. [Concomitant]
     Active Substance: COLCHICINE
  5. AMOXICILLIN. [Concomitant]
     Active Substance: AMOXICILLIN
  6. OPSUMIT [Suspect]
     Active Substance: MACITENTAN
     Indication: PULMONARY HYPERTENSION
     Dosage: 10 MG, QD
     Route: 048
     Dates: start: 20140314
  7. METOPROLOL TARTRATE. [Concomitant]
     Active Substance: METOPROLOL TARTRATE
  8. SILDENAFIL. [Concomitant]
     Active Substance: SILDENAFIL
  9. KLOR-CON [Concomitant]
     Active Substance: POTASSIUM CHLORIDE
  10. HYDROCODONE [Concomitant]
     Active Substance: HYDROCODONE
  11. NEURONTIN [Concomitant]
     Active Substance: GABAPENTIN
  12. TORSEMIDE. [Concomitant]
     Active Substance: TORSEMIDE

REACTIONS (1)
  - Death [Fatal]

NARRATIVE: CASE EVENT DATE: 20151124
